FAERS Safety Report 8320917-5 (Version None)
Quarter: 2012Q2

REPORT INFORMATION
  Report Type: 
  Country: None (occurrence: None)
  Receive Date: 20120430
  Receipt Date: 20120424
  Transmission Date: 20120825
  Serious: Yes (Hospitalization)
  Sender: FDA-Public Use
  Company Number: PHHY2012FR025370

PATIENT
  Sex: Female
  Weight: 50 kg

DRUGS (11)
  1. CLONAZEPAM [Concomitant]
     Dosage: UNK UKN, UNK
     Dates: start: 20070101
  2. TRAMADOL HYDROCHLORIDE [Concomitant]
     Dosage: UNK UKN, UNK
  3. LUTEINE [Concomitant]
     Dosage: UNK UKN, UNK
     Dates: start: 20040101
  4. DOMPERIDONE [Concomitant]
     Dosage: UNK UKN, UNK
  5. VITAMIN D [Concomitant]
     Dosage: UNK UKN, UNK
  6. VALSARTAN [Concomitant]
     Dosage: UNK UKN, UNK
     Dates: start: 20110101
  7. CANDESARTAN CILEXETIL [Concomitant]
     Dosage: UNK UKN, UNK
     Dates: start: 20110101, end: 20111201
  8. ZOLEDRONOC ACID [Suspect]
     Indication: OSTEOPOROSIS
     Dosage: 5 MG, UNK
     Route: 042
     Dates: start: 20111122
  9. FLUTICASONE PROPIONATE/SALMETEROL [Concomitant]
     Dosage: UNK UKN, UNK
     Dates: start: 20070101
  10. FIXICAL [Concomitant]
     Dosage: UNK UKN, UNK
  11. ASPIRIN [Concomitant]
     Dosage: UNK UKN, UNK
     Dates: start: 20070101

REACTIONS (6)
  - SINUS TACHYCARDIA [None]
  - BRONCHOPNEUMOPATHY [None]
  - CHEST PAIN [None]
  - DYSPNOEA [None]
  - PYREXIA [None]
  - HEART RATE INCREASED [None]
